FAERS Safety Report 5000492-3 (Version None)
Quarter: 2006Q2

REPORT INFORMATION
  Report Type: 
  Country: None (occurrence: None)
  Receive Date: 20060512
  Receipt Date: 20060508
  Transmission Date: 20061013
  Serious: Yes (Death)
  Sender: FDA-Public Use
  Company Number: US-JNJFOC-20060101752

PATIENT
  Age: 18 Year
  Sex: Female
  Weight: 45 kg

DRUGS (5)
  1. REMICADE [Suspect]
     Indication: CROHN'S DISEASE
     Route: 042
  2. 6MP [Suspect]
     Indication: CROHN'S DISEASE
     Route: 048
  3. CIPROFLOXACIN [Concomitant]
  4. HYDROCORTISONE [Concomitant]
  5. METRONIDAZOLE [Concomitant]

REACTIONS (1)
  - T-CELL LYMPHOMA [None]
